FAERS Safety Report 6675815-X (Version None)
Quarter: 2010Q2

REPORT INFORMATION
  Report Type: 
  Country: None (occurrence: None)
  Receive Date: 20100412
  Receipt Date: 20100401
  Transmission Date: 20101027
  Serious: Yes (Other)
  Sender: FDA-Public Use
  Company Number: US-BIOGENIDEC-2009BI032257

PATIENT
  Age: 64 Year
  Sex: Female

DRUGS (1)
  1. AVONEX [Suspect]
     Indication: MULTIPLE SCLEROSIS
     Route: 030
     Dates: start: 20010101, end: 20020101

REACTIONS (4)
  - BLOOD CHOLESTEROL INCREASED [None]
  - GLOMERULONEPHRITIS MEMBRANOUS [None]
  - HYPERTENSION [None]
  - OEDEMA PERIPHERAL [None]
